FAERS Safety Report 9525487 (Version 2)
Quarter: 2013Q4

REPORT INFORMATION
  Report Type: Spontaneous
  Country: US (occurrence: US)
  Receive Date: 20130916
  Receipt Date: 20131017
  Transmission Date: 20140711
  Serious: Yes (Other)
  Sender: FDA-Public Use
  Company Number: US-PFIZER INC-2013262546

PATIENT
  Sex: Female

DRUGS (2)
  1. PREMARIN [Suspect]
     Dosage: UNK
  2. NORVASC [Suspect]
     Dosage: UNK

REACTIONS (6)
  - Glaucoma [Unknown]
  - Eye degenerative disorder [Unknown]
  - Cataract [Unknown]
  - Urethritis [Unknown]
  - Bladder disorder [Unknown]
  - Bladder pain [Unknown]
